FAERS Safety Report 8622015-X (Version None)
Quarter: 2012Q3

REPORT INFORMATION
  Report Type: 
  Country: None (occurrence: None)
  Receive Date: 20120823
  Receipt Date: 20120823
  Transmission Date: 20120928
  Serious: Yes (Hospitalization)
  Sender: FDA-Public Use
  Company Number: None

PATIENT
  Age: 36 Year
  Sex: Female
  Weight: 69.4 kg

DRUGS (5)
  1. EPIPEN [Concomitant]
  2. METHYLPHENIDATE [Concomitant]
  3. LAMOTRIGINE [Concomitant]
  4. BUPROPION HYDROCHLORIDE [Suspect]
     Indication: DEPRESSION
     Dosage: 300 MG DAILY ORAL
     Route: 048
     Dates: start: 20120701, end: 20120812
  5. ALPRAZOLAM [Concomitant]

REACTIONS (1)
  - CONVULSION [None]
